FAERS Safety Report 4566450-8 (Version None)
Quarter: 2005Q1

REPORT INFORMATION
  Report Type: 
  Country: None (occurrence: None)
  Receive Date: 20050128
  Receipt Date: 20050118
  Transmission Date: 20050727
  Serious: Yes (Other)
  Sender: FDA-Public Use
  Company Number: 2004096631

PATIENT
  Age: 83 Year
  Sex: Female
  Weight: 82.5547 kg

DRUGS (10)
  1. NORVASC [Suspect]
     Indication: HYPERTENSION
     Dosage: 10 MG (10 MG, 1 IN 1 D), ORAL
     Route: 048
     Dates: start: 20040101
  2. BEXTRA [Suspect]
     Indication: ARTHRITIS
     Dosage: 10 MG (10 MG, 1 IN 1 D), ORAL
     Route: 048
     Dates: start: 20041001
  3. BEXTRA [Suspect]
     Indication: SPINAL COLUMN STENOSIS
     Dosage: 10 MG (10 MG, 1 IN 1 D), ORAL
     Route: 048
     Dates: start: 20041001
  4. LEVOTHYROXINE SODIUM [Concomitant]
  5. POTASSIUM CHLORIDE [Concomitant]
  6. TORSEMIDE [Concomitant]
  7. TOCOPHEROL (TOCOPHEROL) [Concomitant]
  8. OLMESARTAN MEDOXOMIL (OLMESARTAN MEDOXOMIL) [Concomitant]
  9. ACETYLSALICYLIC ACID SRT [Concomitant]
  10. CENTRUM (MINERALS NOS, VITAMINS NOS) [Concomitant]

REACTIONS (8)
  - ARTHRITIS [None]
  - BLOOD PRESSURE INCREASED [None]
  - DRY MOUTH [None]
  - EYE OEDEMA [None]
  - NEOPLASM SKIN [None]
  - PHARMACEUTICAL PRODUCT COMPLAINT [None]
  - PRODUCTIVE COUGH [None]
  - SPINAL COLUMN STENOSIS [None]
